FAERS Safety Report 23757726 (Version 3)
Quarter: 2024Q4

REPORT INFORMATION
  Report Type: Report from Study
  Country: CO (occurrence: CO)
  Receive Date: 20240418
  Receipt Date: 20241112
  Transmission Date: 20250114
  Serious: Yes (Other)
  Sender: JOHNSON AND JOHNSON
  Company Number: CO-JNJFOC-20240153757

PATIENT
  Age: 51 Year
  Sex: Female
  Weight: 61 kg

DRUGS (3)
  1. TREMFYA [Suspect]
     Active Substance: GUSELKUMAB
     Indication: Psoriatic arthropathy
     Dosage: LAST DRUG APPLICATION: 13/JAN/2024
     Route: 058
     Dates: start: 20230701
  2. TREMFYA [Suspect]
     Active Substance: GUSELKUMAB
  3. ZINC OXIDE [Concomitant]
     Active Substance: ZINC OXIDE

REACTIONS (2)
  - Psoriatic arthropathy [Recovered/Resolved]
  - Pruritus [Recovered/Resolved]

NARRATIVE: CASE EVENT DATE: 20231101
